FAERS Safety Report 10743323 (Version 2)
Quarter: 2015Q1

REPORT INFORMATION
  Report Type: Spontaneous
  Country: AU (occurrence: AU)
  Receive Date: 20150127
  Receipt Date: 20150205
  Transmission Date: 20150721
  Serious: Yes (Other)
  Sender: FDA-Public Use
  Company Number: AU-009507513-1501AUS007396

PATIENT
  Age: 36 Year
  Sex: Female

DRUGS (2)
  1. IMPLANON [Suspect]
     Active Substance: ETONOGESTREL
     Dosage: UNK
     Route: 059
     Dates: start: 20140724, end: 20140819
  2. NEXPLANON [Concomitant]
     Active Substance: ETONOGESTREL
     Dosage: UNK
     Dates: end: 20140725

REACTIONS (18)
  - Metrorrhagia [Recovered/Resolved]
  - Device deployment issue [Recovered/Resolved]
  - Musculoskeletal pain [Recovered/Resolved]
  - Hypoaesthesia [Unknown]
  - Neuralgia [Not Recovered/Not Resolved]
  - Product quality issue [Unknown]
  - Surgery [Recovered/Resolved]
  - Device difficult to use [Recovered/Resolved with Sequelae]
  - Scar pain [Not Recovered/Not Resolved]
  - Axillary pain [Recovering/Resolving]
  - Medical device complication [Recovered/Resolved]
  - Peripheral swelling [Unknown]
  - Neck pain [Recovered/Resolved]
  - Itching scar [Unknown]
  - Scar [Not Recovered/Not Resolved]
  - Headache [Recovered/Resolved]
  - Pain in extremity [Recovered/Resolved]
  - Neuralgia [Recovered/Resolved]

NARRATIVE: CASE EVENT DATE: 2014
